FAERS Safety Report 23718817 (Version 2)
Quarter: 2024Q3

REPORT INFORMATION
  Report Type: Spontaneous
  Country: JP (occurrence: JP)
  Receive Date: 20240408
  Receipt Date: 20240909
  Transmission Date: 20241017
  Serious: Yes (Death, Hospitalization)
  Sender: OTSUKA
  Company Number: JP-OTSUKA-2024_009081

PATIENT
  Age: 54 Year
  Sex: Female

DRUGS (1)
  1. ABILIFY MAINTENA [Suspect]
     Active Substance: ARIPIPRAZOLE
     Indication: Schizophrenia
     Dosage: 400 MG/SHOT
     Route: 050

REACTIONS (2)
  - Gastrointestinal disorder [Fatal]
  - Platelet count increased [Unknown]
